FAERS Safety Report 12319920 (Version 6)
Quarter: 2019Q3

REPORT INFORMATION
  Report Type: Spontaneous
  Country: US (occurrence: US)
  Receive Date: 20160429
  Receipt Date: 20190910
  Transmission Date: 20191004
  Serious: Yes (Hospitalization)
  Sender: FDA-Public Use
  Company Number: US-ROCHE-1631335

PATIENT
  Age: 67 Year
  Sex: Female

DRUGS (11)
  1. FLONASE [Concomitant]
     Active Substance: FLUTICASONE PROPIONATE
  2. TOPROL XL [Concomitant]
     Active Substance: METOPROLOL SUCCINATE
  3. ESBRIET [Suspect]
     Active Substance: PIRFENIDONE
     Indication: IDIOPATHIC PULMONARY FIBROSIS
     Route: 048
     Dates: start: 20150711
  4. ELIQUIS [Concomitant]
     Active Substance: APIXABAN
  5. CARDIZEM [Concomitant]
     Active Substance: DILTIAZEM HYDROCHLORIDE
  6. METOPROLOL. [Concomitant]
     Active Substance: METOPROLOL
  7. GABAPENTIN. [Concomitant]
     Active Substance: GABAPENTIN
  8. DILTIAZEM. [Concomitant]
     Active Substance: DILTIAZEM
  9. OXYGEN. [Concomitant]
     Active Substance: OXYGEN
  10. WARFARIN SODIUM. [Concomitant]
     Active Substance: WARFARIN SODIUM
  11. ALPHA LIPOIC ACID [Concomitant]
     Active Substance: .ALPHA.-LIPOIC ACID

REACTIONS (14)
  - Ageusia [Unknown]
  - Oropharyngeal pain [Unknown]
  - Pneumonia [Unknown]
  - Fatigue [Unknown]
  - Decreased appetite [Unknown]
  - Stomatitis [Unknown]
  - Nasal discomfort [Unknown]
  - Somnolence [Unknown]
  - Product dose omission [Unknown]
  - Dry mouth [Unknown]
  - Nausea [Unknown]
  - Taste disorder [Unknown]
  - Memory impairment [Unknown]
  - Glossitis [Unknown]

NARRATIVE: CASE EVENT DATE: 201510
